FAERS Safety Report 9355386 (Version 1)
Quarter: 2013Q2

REPORT INFORMATION
  Report Type: Spontaneous
  Country: US (occurrence: None)
  Receive Date: 20130618
  Receipt Date: 20130618
  Transmission Date: 20140414
  Serious: Yes (Hospitalization)
  Sender: FDA-Public Use
  Company Number: None

PATIENT
  Age: 73 Year
  Sex: Male
  Weight: 72.2 kg

DRUGS (1)
  1. PAZOPANIB [Suspect]
     Indication: GASTROINTESTINAL STROMAL TUMOUR
     Dates: start: 20121007, end: 20121107

REACTIONS (6)
  - Gastrointestinal stromal tumour [None]
  - Neoplasm progression [None]
  - Aspartate aminotransferase increased [None]
  - Alanine aminotransferase increased [None]
  - Blood bilirubin increased [None]
  - Blood alkaline phosphatase increased [None]
